FAERS Safety Report 7271208-5 (Version None)
Quarter: 2011Q1

REPORT INFORMATION
  Report Type: 
  Country: None (occurrence: None)
  Receive Date: 20110202
  Receipt Date: 20110106
  Transmission Date: 20110831
  Serious: Yes (Life-Threatening)
  Sender: FDA-Public Use
  Company Number: JP-ALLERGAN-1101088US

PATIENT
  Age: 82 Year
  Sex: Female

DRUGS (11)
  1. BETAMETHASONE [Concomitant]
     Indication: PRODUCT USED FOR UNKNOWN INDICATION
     Dosage: UNK
     Dates: start: 20101211, end: 20101218
  2. GATIFLOXACIN [Suspect]
     Indication: CATARACT
     Dosage: UNK
     Route: 047
     Dates: start: 20101218
  3. TROPICAMIDE [Concomitant]
     Dosage: UNK
     Dates: start: 20101218, end: 20101224
  4. OPEGUARD MA [Suspect]
     Indication: PRODUCT USED FOR UNKNOWN INDICATION
     Dosage: UNK
     Dates: start: 20101025, end: 20101025
  5. KALLIDINOGENASE [Concomitant]
     Indication: PRODUCT USED FOR UNKNOWN INDICATION
     Dosage: UNK
     Dates: start: 20101022, end: 20101226
  6. SERRAPEPTASE [Concomitant]
     Indication: PRODUCT USED FOR UNKNOWN INDICATION
     Dosage: UNK
     Dates: start: 20101218, end: 20101222
  7. CARBAZOCHROME [Concomitant]
     Indication: PRODUCT USED FOR UNKNOWN INDICATION
     Dosage: UNK
     Dates: start: 20101022, end: 20101226
  8. TROPICAMIDE [Concomitant]
     Dosage: UNK
     Dates: start: 20101211, end: 20101217
  9. SERRAPEPTASE [Concomitant]
     Dosage: UNK
     Dates: start: 20101211, end: 20101214
  10. CEFDINIR [Concomitant]
     Indication: PRODUCT USED FOR UNKNOWN INDICATION
  11. DICLOFENAC SODIUM [Concomitant]
     Indication: PRODUCT USED FOR UNKNOWN INDICATION
     Dosage: UNK
     Dates: start: 20101211, end: 20101224

REACTIONS (5)
  - CORNEAL OPACITY [None]
  - VISUAL ACUITY REDUCED [None]
  - CORNEAL DISORDER [None]
  - INTRAOCULAR PRESSURE INCREASED [None]
  - CORNEAL OEDEMA [None]
